FAERS Safety Report 8588486-2 (Version None)
Quarter: 2012Q3

REPORT INFORMATION
  Report Type: 
  Country: None (occurrence: None)
  Receive Date: 20120813
  Receipt Date: 20120803
  Transmission Date: 20120928
  Serious: Yes (Other)
  Sender: FDA-Public Use
  Company Number: CA-JNJFOC-20120803113

PATIENT
  Sex: Female
  Weight: 51 kg

DRUGS (6)
  1. BENADRYL [Concomitant]
     Route: 065
  2. REMICADE [Suspect]
     Route: 042
     Dates: start: 20080401
  3. REMICADE [Suspect]
     Indication: CROHN'S DISEASE
     Route: 042
     Dates: start: 20120614
  4. TYLENOL [Concomitant]
     Route: 065
  5. SOLU-CORTEF [Concomitant]
     Route: 065
  6. METAMUCIL-2 [Concomitant]
     Route: 065

REACTIONS (1)
  - HIP FRACTURE [None]
